FAERS Safety Report 9248685 (Version 3)
Quarter: 2013Q3

REPORT INFORMATION
  Report Type: Spontaneous
  Country: US (occurrence: US)
  Receive Date: 20130423
  Receipt Date: 20130701
  Transmission Date: 20140515
  Serious: Yes (Other)
  Sender: FDA-Public Use
  Company Number: US-SANOFI-AVENTIS-2013SA040581

PATIENT
  Age: 52 Year
  Sex: Female

DRUGS (22)
  1. AUBAGIO [Suspect]
     Indication: MULTIPLE SCLEROSIS
     Route: 048
     Dates: start: 201301
  2. FAMPRIDINE [Concomitant]
  3. PROGESTERONE [Concomitant]
  4. VIIBRYD [Concomitant]
  5. POTASSIUM CHLORIDE [Concomitant]
     Dosage: CR
  6. SALAGEN [Concomitant]
  7. EVOXAC [Concomitant]
  8. METFORMIN [Concomitant]
  9. FIORICET [Concomitant]
  10. AMBIEN [Concomitant]
  11. ZOFRAN [Concomitant]
  12. LASIX [Concomitant]
  13. PREVACID [Concomitant]
  14. VITAMIN D [Concomitant]
     Dosage: DOSE:1000 UNIT(S)
  15. VITAMIN B12 [Concomitant]
  16. XANAX [Concomitant]
  17. SOMA [Concomitant]
  18. RIZATRIPTAN [Concomitant]
  19. RIFAXIMIN [Concomitant]
  20. AMFETAMINE [Concomitant]
  21. LYRICA [Concomitant]
  22. WELLBUTRIN [Concomitant]

REACTIONS (13)
  - Multiple sclerosis relapse [Not Recovered/Not Resolved]
  - Anxiety [Not Recovered/Not Resolved]
  - Thought blocking [Not Recovered/Not Resolved]
  - Memory impairment [Not Recovered/Not Resolved]
  - Depressed level of consciousness [Not Recovered/Not Resolved]
  - Faecal incontinence [Not Recovered/Not Resolved]
  - Diarrhoea [Not Recovered/Not Resolved]
  - Cognitive disorder [Not Recovered/Not Resolved]
  - Apathy [Not Recovered/Not Resolved]
  - Disturbance in attention [Not Recovered/Not Resolved]
  - Claustrophobia [Not Recovered/Not Resolved]
  - Visual field defect [Recovering/Resolving]
  - Vision blurred [Unknown]
